FAERS Safety Report 9106122 (Version 2)
Quarter: 2013Q1

REPORT INFORMATION
  Report Type: Spontaneous
  Country: GB (occurrence: GB)
  Receive Date: 20130220
  Receipt Date: 20130319
  Transmission Date: 20140127
  Serious: Yes (Congenital Anomaly)
  Sender: FDA-Public Use
  Company Number: GB-GILEAD-2013-0069952

PATIENT
  Sex: 0

DRUGS (3)
  1. TRUVADA [Suspect]
     Indication: HIV INFECTION
     Dosage: ONE DOSE, ONCE DAILY
     Route: 064
     Dates: start: 20090901
  2. NEVIRAPINE [Suspect]
     Indication: HIV INFECTION
     Route: 064
     Dates: start: 20060302
  3. ENGERIX B VACCIN [Concomitant]
     Indication: IMMUNISATION
     Dosage: 1 DF, ONCE
     Route: 064
     Dates: start: 20121119, end: 20121119

REACTIONS (1)
  - Spina bifida [Recovered/Resolved]
